FAERS Safety Report 4528523-5 (Version None)
Quarter: 2004Q4

REPORT INFORMATION
  Report Type: 
  Country: None (occurrence: None)
  Receive Date: 20041216
  Receipt Date: 20040518
  Transmission Date: 20050328
  Serious: No
  Sender: FDA-Public Use
  Company Number: US-BRISTOL-MYERS SQUIBB COMPANY-12590113

PATIENT
  Sex: Male

DRUGS (2)
  1. QUESTRAN [Suspect]
  2. COUMADIN [Concomitant]

REACTIONS (2)
  - CONTUSION [None]
  - OEDEMA PERIPHERAL [None]
